FAERS Safety Report 10222612 (Version 1)
Quarter: 2014Q2

REPORT INFORMATION
  Report Type: Spontaneous
  Country: IT (occurrence: IT)
  Receive Date: 20140606
  Receipt Date: 20140606
  Transmission Date: 20141212
  Serious: Yes (Hospitalization)
  Sender: FDA-Public Use
  Company Number: IT-WATSON-2013-25352

PATIENT
  Age: 64 Year
  Sex: Female

DRUGS (3)
  1. CARBOPLATIN [Suspect]
     Indication: BREAST NEOPLASM
     Dosage: 130 MG, TOTAL
     Route: 042
     Dates: start: 20130924, end: 20130924
  2. ONDANSETRON HYDROCHLORIDE DIHYDRATE [Concomitant]
     Indication: PRODUCT USED FOR UNKNOWN INDICATION
     Dosage: UNK UNK, UNKNOWN
     Route: 065
     Dates: start: 20130924, end: 20130924
  3. DEXAMETHASONE PHOSPHATE [Concomitant]
     Indication: PRODUCT USED FOR UNKNOWN INDICATION
     Dosage: UNK UNK, UNKNOWN
     Route: 065
     Dates: start: 20130924, end: 20130924

REACTIONS (2)
  - Oral discomfort [Recovered/Resolved]
  - Syncope [Recovered/Resolved]
